FAERS Safety Report 5030204-9 (Version None)
Quarter: 2006Q2

REPORT INFORMATION
  Report Type: 
  Country: None (occurrence: None)
  Receive Date: 20060614
  Receipt Date: 20060529
  Transmission Date: 20061013
  Serious: Yes (Other)
  Sender: FDA-Public Use
  Company Number: PHBS2006FR07811

PATIENT
  Sex: Female

DRUGS (4)
  1. CYCLOSPORINE [Suspect]
     Indication: SMALL INTESTINE TRANSPLANT
     Dosage: OTHER
     Dates: start: 19890318
  2. PREDNISOLONE [Suspect]
     Indication: SMALL INTESTINE TRANSPLANT
  3. AZATHIOPRINE [Suspect]
     Indication: SMALL INTESTINE TRANSPLANT
  4. ANTITHYMOCYTE IMMUNOGLOBULIN (RABBIT) (ANTITHYMOCYTE IMMUNOGLOBULIN (R [Concomitant]

REACTIONS (5)
  - CYTOMEGALOVIRUS INFECTION [None]
  - GINGIVAL HYPERPLASIA [None]
  - HYPERTRICHOSIS [None]
  - INTESTINE TRANSPLANT REJECTION [None]
  - PNEUMOCYSTIS JIROVECI PNEUMONIA [None]
